FAERS Safety Report 9225331 (Version 1)
Quarter: 2013Q1

REPORT INFORMATION
  Report Type: Spontaneous
  Country: US (occurrence: None)
  Receive Date: 20120912
  Receipt Date: 20120912
  Transmission Date: 20140127
  Serious: No
  Sender: FDA-Public Use
  Company Number: 2012SP018648

PATIENT
  Age: 31 Year
  Sex: Female

DRUGS (5)
  1. SAPHRIS [Suspect]
     Indication: PRODUCT USED FOR UNKNOWN INDICATION
     Dosage: 5 MG; QAM; SL
     Route: 060
     Dates: start: 20120403, end: 20120409
  2. ZOLOFT [Concomitant]
  3. MELBUTRIN [Concomitant]
  4. ELAVIL [Concomitant]
  5. AMBIEN [Concomitant]

REACTIONS (6)
  - Urinary incontinence [None]
  - Nausea [None]
  - Restlessness [None]
  - Malaise [None]
  - Underdose [None]
  - Insomnia [None]
